FAERS Safety Report 5530460-4 (Version None)
Quarter: 2007Q4

REPORT INFORMATION
  Report Type: 
  Country: None (occurrence: None)
  Receive Date: 20071130
  Receipt Date: 20071121
  Transmission Date: 20080405
  Serious: Yes (Hospitalization)
  Sender: FDA-Public Use
  Company Number: SE-PURDUE-GBR_2007_0003480

PATIENT
  Age: 71 Year
  Sex: Male

DRUGS (10)
  1. OXYCONTIN [Suspect]
     Indication: LUNG NEOPLASM MALIGNANT
     Dosage: 80 MG, DAILY
     Route: 048
  2. MORPHINE [Suspect]
     Indication: LUNG NEOPLASM MALIGNANT
     Dosage: 80 MG, DAILY
     Route: 048
  3. OMEPRAZOLE [Concomitant]
     Indication: DRUG USE FOR UNKNOWN INDICATION
     Route: 065
  4. ZOPICLONE [Concomitant]
     Indication: DRUG USE FOR UNKNOWN INDICATION
     Route: 065
  5. PREDNISOLONE [Concomitant]
     Indication: DRUG USE FOR UNKNOWN INDICATION
     Route: 065
  6. LACTULOSE [Concomitant]
     Indication: DRUG USE FOR UNKNOWN INDICATION
     Route: 065
  7. ACETAMINOPHEN [Concomitant]
     Indication: DRUG USE FOR UNKNOWN INDICATION
     Dosage: 500 MG, UNK
     Route: 065
  8. PRIMPERAN INJ [Concomitant]
     Indication: DRUG USE FOR UNKNOWN INDICATION
     Dosage: 10 MG, UNK
     Route: 065
  9. GLYBURIDE [Concomitant]
     Indication: DRUG USE FOR UNKNOWN INDICATION
     Dosage: 1.75 MG, UNK
     Route: 065
  10. ALFADIL [Concomitant]
     Indication: DRUG USE FOR UNKNOWN INDICATION
     Dosage: 4 MG, UNK
     Route: 065

REACTIONS (2)
  - ABDOMINAL PAIN [None]
  - BOWEL MOVEMENT IRREGULARITY [None]
